FAERS Safety Report 19801332 (Version 1)
Quarter: 2021Q3

REPORT INFORMATION
  Report Type: Spontaneous
  Country: US (occurrence: US)
  Receive Date: 20210908
  Receipt Date: 20210908
  Transmission Date: 20211014
  Serious: Yes (Other)
  Sender: FDA-Public Use
  Company Number: US-SA-2021SA294775

PATIENT
  Sex: Female

DRUGS (1)
  1. LANTUS SOLOSTAR [Suspect]
     Active Substance: INSULIN GLARGINE
     Indication: TYPE 2 DIABETES MELLITUS
     Dosage: 20 IU IN THE MORNING AND 24 IU AT NIGHT
     Route: 065

REACTIONS (4)
  - Memory impairment [Unknown]
  - Cerebrovascular accident [Unknown]
  - Aphasia [Unknown]
  - Inappropriate schedule of product administration [Unknown]
